FAERS Safety Report 24116195 (Version 1)
Quarter: 2024Q3

REPORT INFORMATION
  Report Type: Report from Study
  Country: US (occurrence: None)
  Receive Date: 20240722
  Receipt Date: 20240722
  Transmission Date: 20241016
  Serious: Yes (Other)
  Sender: ASTRAZENECA
  Company Number: 2020SE87764

PATIENT
  Sex: Female
  Weight: 81.6 kg

DRUGS (1)
  1. FASENRA [Suspect]
     Active Substance: BENRALIZUMAB
     Route: 058
     Dates: start: 20190925

REACTIONS (4)
  - Pulmonary thrombosis [Unknown]
  - Oxygen saturation decreased [Unknown]
  - Asthenia [Unknown]
  - Decreased activity [Unknown]
